FAERS Safety Report 8468849-6 (Version None)
Quarter: 2012Q2

REPORT INFORMATION
  Report Type: 
  Country: None (occurrence: None)
  Receive Date: 20120626
  Receipt Date: 20120621
  Transmission Date: 20120825
  Serious: Yes (Hospitalization)
  Sender: FDA-Public Use
  Company Number: AZ-BAYER-2012-033049

PATIENT
  Age: 5 Year
  Sex: Male

DRUGS (1)
  1. KOGENATE FS [Suspect]
     Indication: FACTOR VIII DEFICIENCY

REACTIONS (4)
  - ANTI FACTOR VIII ANTIBODY POSITIVE [None]
  - EPISTAXIS [None]
  - SUBCUTANEOUS HAEMATOMA [None]
  - GINGIVAL BLEEDING [None]
